FAERS Safety Report 5794922-7 (Version None)
Quarter: 2008Q2

REPORT INFORMATION
  Report Type: 
  Country: None (occurrence: None)
  Receive Date: 20080630
  Receipt Date: 20080626
  Transmission Date: 20081010
  Serious: Yes (Death)
  Sender: FDA-Public Use
  Company Number: US-GILEAD-2008-0017063

PATIENT
  Sex: Female

DRUGS (11)
  1. LETAIRIS [Suspect]
     Indication: PULMONARY ARTERIAL HYPERTENSION
     Dosage: 5 MG QD
     Route: 048
     Dates: start: 20071214, end: 20080428
  2. REVATIO [Concomitant]
     Route: 048
     Dates: start: 20070901
  3. LASIX [Concomitant]
     Route: 048
     Dates: start: 20070901
  4. PEPCID [Concomitant]
     Route: 048
     Dates: start: 20070901
  5. PREDNISONE [Concomitant]
     Route: 048
     Dates: start: 20070901
  6. PROTONIX [Concomitant]
     Route: 048
     Dates: start: 20070901
  7. LORAZEPAM [Concomitant]
     Route: 048
     Dates: start: 20070901
  8. PAXIL [Concomitant]
     Route: 048
     Dates: start: 20070901
  9. ZOCOR [Concomitant]
     Route: 048
     Dates: start: 20070901
  10. MAGNESIUM [Concomitant]
     Route: 048
     Dates: start: 20070901
  11. POTASSIUM CHLORIDE [Concomitant]
     Route: 048
     Dates: start: 20070901

REACTIONS (1)
  - DEATH [None]
